FAERS Safety Report 15836847 (Version 5)
Quarter: 2021Q1

REPORT INFORMATION
  Report Type: Report from Study
  Country: BE (occurrence: BE)
  Receive Date: 20190117
  Receipt Date: 20210317
  Transmission Date: 20210419
  Serious: Yes (Hospitalization)
  Sender: FDA-Public Use
  Company Number: BE-ROCHE-2245254

PATIENT
  Age: 74 Year
  Sex: Female
  Weight: 70 kg

DRUGS (66)
  1. PLACEBO [Suspect]
     Active Substance: UNSPECIFIED INGREDIENT
     Indication: DIFFUSE LARGE B-CELL LYMPHOMA
     Dosage: DATE OF MOST RECENT DOSE PRIOR TO SAE ONSET: 03 JAN 2019
     Route: 042
     Dates: start: 20181019
  2. CYCLOPHOSPHAMIDE. [Suspect]
     Active Substance: CYCLOPHOSPHAMIDE
     Indication: DIFFUSE LARGE B-CELL LYMPHOMA
     Dosage: DATE OF MOST RECENT DOSE OF CYCLOPHOSPHAMIDE PRIOR TO SAE ONSET 03 JAN 2019 (940 MG)
     Route: 042
     Dates: start: 20181019
  3. DIPROSONE [Concomitant]
     Active Substance: BETAMETHASONE DIPROPIONATE
     Indication: ECZEMA
     Route: 061
  4. FRAXIPARINE [Concomitant]
     Active Substance: NADROPARIN CALCIUM
     Indication: DEEP VEIN THROMBOSIS
     Route: 058
     Dates: start: 20181015
  5. ENTEROL (BELGIUM) [Concomitant]
     Indication: DIARRHOEA
     Route: 048
     Dates: start: 20190111, end: 20190122
  6. NEULASTA [Concomitant]
     Active Substance: PEGFILGRASTIM
     Route: 058
     Dates: start: 20190219, end: 20190219
  7. KALIUM RETARD [Concomitant]
     Route: 048
     Dates: start: 20190114, end: 20190122
  8. FLAGYL [Concomitant]
     Active Substance: METRONIDAZOLE\METRONIDAZOLE HYDROCHLORIDE
     Route: 048
     Dates: start: 20190516, end: 20190520
  9. VANCOMYCINE [Concomitant]
     Active Substance: VANCOMYCIN
     Route: 048
     Dates: start: 20190322, end: 20190402
  10. IMUTIS [Concomitant]
     Route: 048
     Dates: start: 20190403, end: 20190411
  11. ZINNAT [Concomitant]
     Active Substance: CEFUROXIME
     Route: 048
     Dates: start: 20190516, end: 20190528
  12. DEXERYL CREAM [Concomitant]
     Active Substance: GLYCERIN\MINERAL OIL\PETROLATUM
     Indication: ECZEMA
     Route: 061
  13. FORLAX [Concomitant]
     Active Substance: POLYETHYLENE GLYCOL 4000
     Indication: CONSTIPATION
     Route: 048
     Dates: start: 20181021
  14. RBC TRANSFUSION [Concomitant]
     Dosage: 1 UNIT
     Route: 042
     Dates: start: 20181223, end: 20181223
  15. CEFTRIAXONE. [Concomitant]
     Active Substance: CEFTRIAXONE
     Route: 042
     Dates: start: 20181209, end: 20181217
  16. POLATUZUMAB VEDOTIN. [Suspect]
     Active Substance: POLATUZUMAB VEDOTIN
     Indication: DIFFUSE LARGE B-CELL LYMPHOMA
     Dosage: DOSE OF LAST POLATUZUMAB VEDOTIN ADMINISTERED: 124.2 MG?DATE OF MOST RECENT DOSE OF POLATUZUMAB VEDO
     Route: 042
     Dates: start: 20181019
  17. DOXORUBICIN [Suspect]
     Active Substance: DOXORUBICIN
     Indication: DIFFUSE LARGE B-CELL LYMPHOMA
     Dosage: ON DAY 1 (AS PER PROTOCOL)?DATE OF MOST RECENT DOSE OF DOXORUBICIN PRIOR TO SAE ONSET 03 JAN 2019 (8
     Route: 042
     Dates: start: 20181019
  18. PREDNISONE. [Suspect]
     Active Substance: PREDNISONE
     Indication: DIFFUSE LARGE B-CELL LYMPHOMA
     Dosage: 100 MG/DAY DAYS 1?5 OF EVERY 21?DAY (AS PER PROTOCOL)?DATE OF MOST RECENT DOSE OF PREDNISONE PRIOR T
     Route: 048
     Dates: start: 20181019
  19. L?THYROXINE [Concomitant]
     Active Substance: LEVOTHYROXINE
     Indication: HYPOTHYROIDISM
     Route: 048
     Dates: start: 20181129
  20. IMODIUM [Concomitant]
     Active Substance: LOPERAMIDE HYDROCHLORIDE
     Indication: APPENDICITIS
     Route: 048
     Dates: start: 20181102
  21. REPAGLINIDE. [Concomitant]
     Active Substance: REPAGLINIDE
     Route: 048
     Dates: start: 20190125
  22. RBC TRANSFUSION [Concomitant]
     Indication: ANAEMIA
     Dosage: 1 UNIT
     Route: 042
     Dates: start: 20181212, end: 20181212
  23. KALIUM RETARD [Concomitant]
     Indication: HYPOKALAEMIA
     Route: 048
     Dates: start: 20181213, end: 20181216
  24. GLUCOPHAGE [Concomitant]
     Active Substance: METFORMIN HYDROCHLORIDE
     Indication: TYPE 2 DIABETES MELLITUS
     Route: 048
     Dates: start: 20181218, end: 20181224
  25. FRAXIPARINE [Concomitant]
     Active Substance: NADROPARIN CALCIUM
     Route: 058
     Dates: start: 20190111, end: 20190111
  26. FRAXIPARINE [Concomitant]
     Active Substance: NADROPARIN CALCIUM
     Route: 058
     Dates: start: 20190121, end: 20190124
  27. LYSOMUCIL [Concomitant]
     Active Substance: ACETYLCYSTEINE
     Indication: RESPIRATORY TRACT INFECTION
     Route: 048
     Dates: start: 20181211
  28. TRIANAL C [Concomitant]
     Route: 061
     Dates: start: 20190115, end: 20190124
  29. KALIUM RETARD [Concomitant]
     Route: 048
     Dates: start: 20190226, end: 20190228
  30. KALIUM RETARD [Concomitant]
     Route: 048
     Dates: start: 20190301, end: 20190302
  31. NYSTATINE [Concomitant]
     Active Substance: NYSTATIN
     Indication: MUCOSAL INFLAMMATION
     Dosage: 1 OTHER
     Route: 048
     Dates: start: 20190111
  32. PIPERACILLIN AND TAZOBACTAM [Concomitant]
     Active Substance: PIPERACILLIN SODIUM\TAZOBACTAM SODIUM
     Indication: FEBRILE NEUTROPENIA
     Route: 042
     Dates: start: 20190224, end: 20190304
  33. NEOGENYL [Concomitant]
     Route: 048
     Dates: start: 20190122
  34. NEULASTA [Concomitant]
     Active Substance: PEGFILGRASTIM
     Indication: NEUTROPENIA
     Route: 058
     Dates: start: 20181218, end: 20181218
  35. NEULASTA [Concomitant]
     Active Substance: PEGFILGRASTIM
     Route: 058
     Dates: start: 20190129, end: 20190129
  36. PRIVIGEN [Concomitant]
     Active Substance: HUMAN IMMUNOGLOBULIN G
     Indication: RESPIRATORY TRACT INFECTION
     Route: 042
     Dates: start: 20181212, end: 20181212
  37. ABASAGLAR [Concomitant]
     Active Substance: INSULIN GLARGINE
     Route: 058
     Dates: start: 20190114, end: 20190116
  38. BIFIDOBACTERIUM LACTIS [Concomitant]
     Active Substance: BIFIDOBACTERIUM ANIMALIS LACTIS
     Route: 048
     Dates: start: 20190425
  39. LANTUS [Concomitant]
     Active Substance: INSULIN GLARGINE
     Indication: TYPE 2 DIABETES MELLITUS
     Route: 058
  40. ACTRAPID [Concomitant]
     Active Substance: INSULIN HUMAN
     Indication: TYPE 2 DIABETES MELLITUS
     Route: 058
  41. PULMICORT TURBUHALER [Concomitant]
     Active Substance: BUDESONIDE
     Indication: RESPIRATORY TRACT INFECTION
     Route: 055
     Dates: start: 20181210, end: 20181220
  42. FOLAVIT [Concomitant]
     Active Substance: FOLIC ACID
     Indication: ANAEMIA
     Route: 048
     Dates: start: 20190115
  43. RBC TRANSFUSION [Concomitant]
     Dosage: 1 UNIT
     Route: 042
     Dates: start: 20181218, end: 20181218
  44. KALIUM RETARD [Concomitant]
     Route: 048
     Dates: start: 20190303
  45. GLUCOPHAGE [Concomitant]
     Active Substance: METFORMIN HYDROCHLORIDE
     Route: 048
     Dates: start: 20190117, end: 20190121
  46. LYRICA [Concomitant]
     Active Substance: PREGABALIN
     Indication: HERPES ZOSTER
     Route: 048
     Dates: start: 20181018
  47. ATROVENT [Concomitant]
     Active Substance: IPRATROPIUM BROMIDE
     Indication: RESPIRATORY TRACT INFECTION
     Dates: start: 20181210, end: 20181220
  48. REPAGLINIDE. [Concomitant]
     Active Substance: REPAGLINIDE
     Indication: TYPE 2 DIABETES MELLITUS
     Route: 048
     Dates: start: 20190121, end: 20190124
  49. NEULASTA [Concomitant]
     Active Substance: PEGFILGRASTIM
     Route: 058
     Dates: start: 20190108, end: 20190108
  50. KALIUM RETARD [Concomitant]
     Route: 048
     Dates: start: 20190225, end: 20190225
  51. KALIUM RETARD [Concomitant]
     Route: 048
     Dates: start: 20190125, end: 20190224
  52. PARACETAMOL [Concomitant]
     Active Substance: ACETAMINOPHEN
     Indication: FEBRILE NEUTROPENIA
     Route: 042
     Dates: start: 20190224, end: 20190224
  53. MAGNETOP [Concomitant]
     Route: 048
     Dates: start: 20190307
  54. VANCOMYCINE [Concomitant]
     Active Substance: VANCOMYCIN
     Route: 048
     Dates: start: 20190425, end: 20190509
  55. RITUXIMAB. [Suspect]
     Active Substance: RITUXIMAB
     Indication: DIFFUSE LARGE B-CELL LYMPHOMA
     Dosage: DATE OF MOST RECENT DOSE OF RITUXIMAB PRIOR TO SAE ONSET 03 JAN 2019 (626.25 MG)
     Route: 042
     Dates: start: 20181019
  56. EMCONCOR [Concomitant]
     Active Substance: BISOPROLOL FUMARATE
     Indication: HYPERTENSION
     Route: 048
  57. ZYLORIC [Concomitant]
     Active Substance: ALLOPURINOL
     Indication: TUMOUR LYSIS SYNDROME
     Route: 048
     Dates: start: 20181015
  58. ACICLOVIR [Concomitant]
     Active Substance: ACYCLOVIR
     Indication: HERPES VIRUS INFECTION
     Route: 048
     Dates: start: 20181016
  59. TRAJENTA [Concomitant]
     Active Substance: LINAGLIPTIN
     Indication: TYPE 2 DIABETES MELLITUS
     Route: 048
     Dates: start: 20181015
  60. RBC TRANSFUSION [Concomitant]
     Dosage: 1 UNIT
     Route: 042
     Dates: start: 20190112, end: 20190112
  61. PRIVIGEN [Concomitant]
     Active Substance: HUMAN IMMUNOGLOBULIN G
     Route: 042
     Dates: start: 20190326
  62. KALIUM RETARD [Concomitant]
     Route: 048
     Dates: start: 20181221, end: 20181223
  63. FLAGYL [Concomitant]
     Active Substance: METRONIDAZOLE\METRONIDAZOLE HYDROCHLORIDE
     Indication: CLOSTRIDIUM DIFFICILE COLITIS
     Route: 048
     Dates: start: 20190304, end: 20190314
  64. VANCOMYCINE [Concomitant]
     Active Substance: VANCOMYCIN
     Route: 048
     Dates: start: 20190516, end: 20190520
  65. IMUTIS [Concomitant]
     Route: 048
     Dates: start: 20190322, end: 20190402
  66. CIPROFLOXACINE [Concomitant]
     Active Substance: CIPROFLOXACIN
     Route: 048
     Dates: start: 20190207, end: 20190214

REACTIONS (2)
  - General physical health deterioration [Recovered/Resolved]
  - Decreased appetite [Not Recovered/Not Resolved]

NARRATIVE: CASE EVENT DATE: 20190111
